FAERS Safety Report 4873103-5 (Version None)
Quarter: 2006Q1

REPORT INFORMATION
  Report Type: 
  Country: None (occurrence: None)
  Receive Date: 20060103
  Receipt Date: 20060103
  Transmission Date: 20060701
  Serious: No
  Sender: FDA-Public Use
  Company Number: None

PATIENT

DRUGS (1)
  1. MORPHINE SULFATE ER   100 MG     ENDO PHARMACEUTICALS -MFR- [Suspect]
     Indication: PAIN
     Dosage: SIX TABLETS  DAILY AS DIRECTED  PO
     Route: 048
     Dates: start: 20050907, end: 20051115

REACTIONS (2)
  - DRUG INEFFECTIVE [None]
  - PHARMACEUTICAL PRODUCT COMPLAINT [None]
